FAERS Safety Report 8645602 (Version 5)
Quarter: 2014Q4

REPORT INFORMATION
  Report Type: Spontaneous
  Country: US (occurrence: US)
  Receive Date: 20120702
  Receipt Date: 20141014
  Transmission Date: 20150529
  Serious: Yes (Other)
  Sender: FDA-Public Use
  Company Number: US-ASTRAZENECA-2012SE42563

PATIENT
  Age: 76 Year
  Sex: Male
  Weight: 108.9 kg

DRUGS (3)
  1. OTHER [Concomitant]
     Active Substance: UNSPECIFIED INGREDIENT
     Indication: PROSTATIC DISORDER
     Dosage: UNK, DAILY
  2. OTHER (UNSPECIFIED) [Concomitant]
     Active Substance: UNSPECIFIED INGREDIENT
     Indication: BLOOD PRESSURE ABNORMAL
  3. NEXIUM [Suspect]
     Active Substance: ESOMEPRAZOLE MAGNESIUM
     Indication: GASTROOESOPHAGEAL REFLUX DISEASE
     Route: 048
     Dates: start: 2001

REACTIONS (6)
  - Musculoskeletal disorder [Unknown]
  - Prostate cancer [Unknown]
  - Back injury [Unknown]
  - Weight fluctuation [Unknown]
  - Road traffic accident [Unknown]
  - Joint injury [Unknown]

NARRATIVE: CASE EVENT DATE: 20110621
